FAERS Safety Report 6808024-1 (Version None)
Quarter: 2010Q2

REPORT INFORMATION
  Report Type: 
  Country: None (occurrence: None)
  Receive Date: 20100629
  Receipt Date: 20090313
  Transmission Date: 20101027
  Serious: No
  Sender: FDA-Public Use
  Company Number: US-PFIZER INC-2009185950

PATIENT
  Sex: Male
  Weight: 77.11 kg

DRUGS (4)
  1. XANAX [Suspect]
     Indication: ANXIETY
     Dosage: UNK
     Route: 048
  2. XANAX [Suspect]
     Indication: PHOBIA
  3. LEXAPRO [Concomitant]
     Dosage: UNK
  4. BUSPAR [Concomitant]
     Dosage: UNK

REACTIONS (2)
  - AGGRESSION [None]
  - ANXIETY [None]
